FAERS Safety Report 7492471-1 (Version None)
Quarter: 2011Q2

REPORT INFORMATION
  Report Type: 
  Country: None (occurrence: None)
  Receive Date: 20110519
  Receipt Date: 20110512
  Transmission Date: 20111010
  Serious: Yes (Hospitalization, Disabling)
  Sender: FDA-Public Use
  Company Number: US-US-EMD SERONO, INC.-232062J09USA

PATIENT
  Sex: Female
  Weight: 95 kg

DRUGS (6)
  1. REBIF [Suspect]
     Indication: MULTIPLE SCLEROSIS
     Route: 058
     Dates: start: 20081111, end: 20101201
  2. PERCOCET [Concomitant]
     Indication: PAIN
  3. FLEXERIL [Concomitant]
     Indication: TREMOR
  4. SAVELLA [Concomitant]
     Indication: ANXIETY
     Dates: start: 20090901
  5. FLEXERIL [Concomitant]
     Indication: MUSCLE SPASMS
  6. SAVELLA [Concomitant]
     Indication: FIBROMYALGIA

REACTIONS (10)
  - FALL [None]
  - PAIN [None]
  - ROAD TRAFFIC ACCIDENT [None]
  - CONSTIPATION [None]
  - DYSURIA [None]
  - INJECTION SITE REACTION [None]
  - INTERVERTEBRAL DISC PROTRUSION [None]
  - MULTIPLE SCLEROSIS RELAPSE [None]
  - CYSTITIS [None]
  - FATIGUE [None]
